FAERS Safety Report 19738146 (Version 3)
Quarter: 2021Q4

REPORT INFORMATION
  Report Type: Report from Study
  Country: ES (occurrence: ES)
  Receive Date: 20210823
  Receipt Date: 20211202
  Transmission Date: 20220304
  Serious: Yes (Other)
  Sender: FDA-Public Use
  Company Number: ES-MYLANLABS-2021M1049137

PATIENT
  Age: 72 Year
  Sex: Female

DRUGS (6)
  1. PREGABALIN [Interacting]
     Active Substance: PREGABALIN
     Indication: Tremor
     Dosage: UNK
     Route: 065
  2. PREGABALIN [Interacting]
     Active Substance: PREGABALIN
     Indication: Orthostatic tremor
  3. CLONAZEPAM [Interacting]
     Active Substance: CLONAZEPAM
     Indication: Tremor
     Dosage: UNK
     Route: 065
  4. CLONAZEPAM [Interacting]
     Active Substance: CLONAZEPAM
     Indication: Orthostatic tremor
  5. PERAMPANEL [Interacting]
     Active Substance: PERAMPANEL
     Indication: Orthostatic tremor
     Dosage: 2 MG, 1X/DAY (INITIAL DOSE WAS 2 MG/DAY, WHICH WAS INCREASED TO 4 MG/DAY AFTER THE FIRST MONTH)
     Route: 065
  6. PERAMPANEL [Interacting]
     Active Substance: PERAMPANEL
     Dosage: 4 MG, 1X/DAY (AFTER THE FIRST MONTH)
     Route: 065

REACTIONS (9)
  - Drug interaction [Unknown]
  - Tremor [Unknown]
  - Orthostatic tremor [Unknown]
  - Rebound effect [Unknown]
  - Gait disturbance [Unknown]
  - Balance disorder [Unknown]
  - Impaired quality of life [Unknown]
  - Off label use [Unknown]
  - Asthenia [Unknown]
